FAERS Safety Report 10061149 (Version 2)
Quarter: 2014Q2

REPORT INFORMATION
  Report Type: Report from Study
  Country: US (occurrence: US)
  Receive Date: 20140406
  Receipt Date: 20140409
  Transmission Date: 20141212
  Serious: Yes (Hospitalization, Other)
  Sender: FDA-Public Use
  Company Number: US-BRISTOL-MYERS SQUIBB COMPANY-20578894

PATIENT
  Age: 74 Year
  Sex: Female
  Weight: 59.9 kg

DRUGS (5)
  1. NIVOLUMAB [Suspect]
     Indication: METASTATIC MALIGNANT MELANOMA
     Dosage: INTRPTD ON 02DEC13?RESTRTD ON 10MAR14 181/2 WKS, IV
     Route: 042
     Dates: start: 20130923
  2. IPILIMUMAB [Suspect]
     Indication: METASTATIC MALIGNANT MELANOMA
     Dosage: INTRPTD ON 17FEB14
     Route: 042
     Dates: start: 20131216
  3. FERROUS SULFATE [Concomitant]
     Dates: start: 20130806
  4. EMLA [Concomitant]
     Dates: start: 20130923
  5. HYDROCORTISONE CREAM [Concomitant]
     Dosage: STR: 1%.?2 SQUIRTS
     Dates: start: 20140106

REACTIONS (1)
  - Pneumonitis [Recovering/Resolving]
